FAERS Safety Report 6647257-4 (Version None)
Quarter: 2010Q1

REPORT INFORMATION
  Report Type: 
  Country: None (occurrence: None)
  Receive Date: 20100323
  Receipt Date: 20100317
  Transmission Date: 20100710
  Serious: Yes (Other)
  Sender: FDA-Public Use
  Company Number: A0850914A

PATIENT
  Age: 63 Year
  Sex: Female
  Weight: 62.2 kg

DRUGS (1)
  1. PAZOPANIB [Suspect]
     Indication: SARCOMA
     Dosage: 800MG PER DAY
     Route: 048
     Dates: start: 20100118

REACTIONS (1)
  - DEEP VEIN THROMBOSIS [None]
